FAERS Safety Report 5528012-5 (Version None)
Quarter: 2007Q4

REPORT INFORMATION
  Report Type: 
  Country: None (occurrence: None)
  Receive Date: 20071123
  Receipt Date: 20071112
  Transmission Date: 20080405
  Serious: Yes (Hospitalization)
  Sender: FDA-Public Use
  Company Number: 2007-163029-NL

PATIENT
  Age: 40 Year
  Sex: Female

DRUGS (2)
  1. CHORIONIC GONADOTROPHIN [Suspect]
     Dosage: DF
  2. LUTEINISING [Suspect]
     Dosage: DF

REACTIONS (3)
  - CAESAREAN SECTION [None]
  - DRUG EXPOSURE BEFORE PREGNANCY [None]
  - MYOCARDIAL INFARCTION [None]
